FAERS Safety Report 19608245 (Version 1)
Quarter: 2021Q3

REPORT INFORMATION
  Report Type: Spontaneous
  Country: US (occurrence: US)
  Receive Date: 20210723
  Receipt Date: 20210723
  Transmission Date: 20211014
  Serious: Yes (Hospitalization)
  Sender: FDA-Public Use
  Company Number: None

PATIENT
  Age: 60 Year
  Sex: Male
  Weight: 80.55 kg

DRUGS (2)
  1. DILAUDID [Suspect]
     Active Substance: HYDROMORPHONE HYDROCHLORIDE
     Indication: PAIN
     Dates: start: 20210713, end: 20210713
  2. DILAUDID [Suspect]
     Active Substance: HYDROMORPHONE HYDROCHLORIDE
     Indication: SPINAL OPERATION
     Dates: start: 20210713, end: 20210713

REACTIONS (8)
  - Hyperhidrosis [None]
  - Pain [None]
  - Blood pressure increased [None]
  - Hypersensitivity [None]
  - Nausea [None]
  - Vomiting [None]
  - Heart rate increased [None]
  - Dizziness [None]

NARRATIVE: CASE EVENT DATE: 20210713
